FAERS Safety Report 7148480-5 (Version None)
Quarter: 2010Q4

REPORT INFORMATION
  Report Type: 
  Country: None (occurrence: None)
  Receive Date: 20101209
  Receipt Date: 20101117
  Transmission Date: 20110411
  Serious: Yes (Other)
  Sender: FDA-Public Use
  Company Number: US-PFIZER INC-US-WYE-H17994810

PATIENT
  Age: 54 Year
  Sex: Male
  Weight: 86.168 kg

DRUGS (3)
  1. ANBESOL [Suspect]
     Indication: TOOTHACHE
     Dosage: 2 FULL BOTTLES/24 HOURS
     Route: 048
  2. METOPROLOL [Concomitant]
  3. OXYGEN [Concomitant]

REACTIONS (4)
  - CYANOSIS [None]
  - HYPERTENSION [None]
  - OVERDOSE [None]
  - TREMOR [None]
